FAERS Safety Report 5266651-X (Version None)
Quarter: 2007Q1

REPORT INFORMATION
  Report Type: 
  Country: None (occurrence: None)
  Receive Date: 20070312
  Receipt Date: 20070228
  Transmission Date: 20070707
  Serious: Yes (Other)
  Sender: FDA-Public Use
  Company Number: 2007SP003954

PATIENT
  Sex: Female

DRUGS (2)
  1. AERIUS (DESLORATADINE) (DESLORATADINE) [Suspect]
     Indication: DRUG USE FOR UNKNOWN INDICATION
  2. NEOCLARITIN (DESLORATADINE) (DESLORATADINE) [Suspect]
     Indication: DRUG USE FOR UNKNOWN INDICATION

REACTIONS (3)
  - EPISTAXIS [None]
  - PSORIASIS [None]
  - SWELLING FACE [None]
